FAERS Safety Report 10463510 (Version 1)
Quarter: 2014Q3

REPORT INFORMATION
  Report Type: Spontaneous
  Country: US (occurrence: None)
  Receive Date: 20140918
  Receipt Date: 20140918
  Transmission Date: 20150326
  Serious: Yes (Other)
  Sender: FDA-Public Use
  Company Number: None

PATIENT
  Age: 39 Year
  Sex: Male
  Weight: 85.73 kg

DRUGS (1)
  1. ICY HOT [Suspect]
     Active Substance: MENTHOL\METHYL SALICYLATE
     Indication: NECK PAIN
     Dosage: 1 PATCH, TWICE DAILY, APPLIED TO A SURFACE, USUALLY THE SKIN
     Route: 061
     Dates: start: 20140911, end: 20140912

REACTIONS (8)
  - Application site burn [None]
  - Dermatitis [None]
  - Chemical injury [None]
  - Neck pain [None]
  - Pruritus [None]
  - Blister [None]
  - Swelling [None]
  - Rash [None]

NARRATIVE: CASE EVENT DATE: 20140911
